FAERS Safety Report 9824956 (Version 2)
Quarter: 2014Q1

REPORT INFORMATION
  Report Type: Spontaneous
  Country: ES (occurrence: ES)
  Receive Date: 20140117
  Receipt Date: 20140117
  Transmission Date: 20141002
  Serious: Yes (Hospitalization, Other)
  Sender: FDA-Public Use
  Company Number: ES-INDICUS PHARMA-000226

PATIENT
  Age: 75 Year
  Sex: Female

DRUGS (6)
  1. ACENOCOUMAROL [Concomitant]
  2. SITAGLIPTIN/SITAGLIPTIN PHOSPHATE [Suspect]
     Indication: PRODUCT USED FOR UNKNOWN INDICATION
  3. INSULIN [Concomitant]
     Dosage: DOSE: 36 IU EVERY 24 HOURS
  4. BUDESONIDE AND FORMOTEROL FUMERATE (BUDESONIDE W/ FORMOTEROL FUMARATE) [Concomitant]
     Dosage: FORMOTEROL 4.5 MCG AND BUDESONIDE 160 MCG POWDER FOR INHALATION EVERY 12 HRS
     Route: 055
  5. METFORMIN [Suspect]
     Indication: PRODUCT USED FOR UNKNOWN INDICATION
     Dosage: METFORMIN 1 GM EVERY 24 HOURS
  6. DIGOXIN [Suspect]
     Indication: PRODUCT USED FOR UNKNOWN INDICATION
     Dosage: 0.125 MG DOSE INCREASED TO 0.25 MG, EVERY 72 HOURS

REACTIONS (4)
  - Hypotension [Recovered/Resolved]
  - Renal failure chronic [Recovering/Resolving]
  - Tachycardia [Recovered/Resolved]
  - Overdose [Recovered/Resolved]
